FAERS Safety Report 19196846 (Version 1)
Quarter: 2021Q2

REPORT INFORMATION
  Report Type: Spontaneous
  Country: FR (occurrence: FR)
  Receive Date: 20210429
  Receipt Date: 20210429
  Transmission Date: 20210717
  Serious: Yes (Other)
  Sender: FDA-Public Use
  Company Number: FR-ELI_LILLY_AND_COMPANY-FR202104008879

PATIENT
  Age: 48 Year
  Sex: Female

DRUGS (2)
  1. HUMALOG [Suspect]
     Active Substance: INSULIN LISPRO
     Indication: DIABETES MELLITUS
     Dosage: 120 INTERNATIONAL UNIT, DAILY
     Route: 058
     Dates: start: 20210329, end: 20210330
  2. HUMALOG [Concomitant]
     Active Substance: INSULIN LISPRO
     Indication: DIABETES MELLITUS
     Dosage: UNK, OTHER (NON ADMINISTERED)
     Route: 058

REACTIONS (4)
  - Hypoglycaemia [Recovered/Resolved]
  - Product label confusion [Recovered/Resolved]
  - Product name confusion [Recovered/Resolved]
  - Product packaging confusion [Recovered/Resolved]

NARRATIVE: CASE EVENT DATE: 20210329
